FAERS Safety Report 19004355 (Version 2)
Quarter: 2021Q2

REPORT INFORMATION
  Report Type: Spontaneous
  Country: FR (occurrence: FR)
  Receive Date: 20210312
  Receipt Date: 20210402
  Transmission Date: 20210717
  Serious: Yes (Other)
  Sender: FDA-Public Use
  Company Number: FR-ASTRAZENECA-2021A116948

PATIENT
  Age: 49 Year
  Sex: Male

DRUGS (1)
  1. IMFINZI [Suspect]
     Active Substance: DURVALUMAB
     Indication: LARGE CELL LUNG CANCER STAGE III
     Route: 042
     Dates: start: 20200408, end: 20200603

REACTIONS (1)
  - Organising pneumonia [Not Recovered/Not Resolved]
